FAERS Safety Report 25788986 (Version 3)
Quarter: 2025Q4

REPORT INFORMATION
  Report Type: Spontaneous
  Country: JP (occurrence: JP)
  Receive Date: 20250911
  Receipt Date: 20251030
  Transmission Date: 20260117
  Serious: Yes (Other)
  Sender: AMGEN
  Company Number: JP-AMGEN-JPNSP2025178935

PATIENT
  Age: 8 Year
  Sex: Female
  Weight: 26 kg

DRUGS (12)
  1. BLINCYTO [Suspect]
     Active Substance: BLINATUMOMAB
     Indication: B precursor type acute leukaemia
     Dosage: APPROXIMATELY 5 MCG , CONTINUING, CONTINUOUS ADMINISTRATION FOR 24 HOURS, DRIP INFUSION
     Route: 040
     Dates: start: 20250902, end: 20250903
  2. METHOTREXATE [Suspect]
     Active Substance: METHOTREXATE
     Indication: B precursor type acute leukaemia
     Dosage: 12 MILLIGRAM, QD
     Route: 051
     Dates: start: 20250901, end: 20250901
  3. CYTARABINE [Suspect]
     Active Substance: CYTARABINE
     Indication: B precursor type acute leukaemia
     Dosage: 30 MILLIGRAM, QD
     Route: 029
     Dates: start: 20250901, end: 20250901
  4. PREDONINE [Suspect]
     Active Substance: PREDNISOLONE
     Indication: B precursor type acute leukaemia
     Dosage: 10 MILLIGRAM, QD
     Route: 029
     Dates: start: 20250901, end: 20250901
  5. FLUCONAZOLE [Concomitant]
     Active Substance: FLUCONAZOLE
     Dosage: 100 MILLIGRAM, QD
     Route: 065
     Dates: start: 20250517
  6. MONTELUKAST [Concomitant]
     Active Substance: MONTELUKAST
     Dosage: 5 MILLIGRAM, QD
     Dates: start: 20250520
  7. SULFAMETHOXAZOLE\TRIMETHOPRIM [Concomitant]
     Active Substance: SULFAMETHOXAZOLE\TRIMETHOPRIM
     Dosage: 2 DOSAGE FORM, Q3WK
     Route: 065
     Dates: start: 20250517
  8. OLOPATADINE HYDROCHLORIDE [Concomitant]
     Active Substance: OLOPATADINE HYDROCHLORIDE
     Dosage: 10 MILLIGRAM, QD
     Route: 065
     Dates: start: 20250831, end: 20250902
  9. DEXAMETHASONE SODIUM PHOSPHATE [Concomitant]
     Active Substance: DEXAMETHASONE SODIUM PHOSPHATE
     Dosage: 8.25 MILLIGRAM
     Route: 048
     Dates: start: 20250901, end: 20250901
  10. AMINO ACIDS\DEXTROSE\ELECTROLYTES NOS\MINERALS\VITAMINS [Concomitant]
     Active Substance: AMINO ACIDS\DEXTROSE\ELECTROLYTES NOS\MINERALS\VITAMINS
     Dosage: 1000 MILLILITER, QD
     Route: 065
     Dates: start: 20250901, end: 20250905
  11. ACETAMINOPHEN [Concomitant]
     Active Substance: ACETAMINOPHEN
     Dosage: 250 MILLIGRAM, BID
     Route: 040
     Dates: start: 20250903, end: 20250903
  12. DEXAMETHASONE [Concomitant]
     Active Substance: DEXAMETHASONE
     Dosage: UNK, AT ONSET OF SYMPTOM (0.1 PERCENT 5G)
     Route: 048
     Dates: start: 20250902

REACTIONS (2)
  - Liver disorder [Recovering/Resolving]
  - Cytokine release syndrome [Recovered/Resolved]

NARRATIVE: CASE EVENT DATE: 20250902
